FAERS Safety Report 6608770-9 (Version None)
Quarter: 2010Q1

REPORT INFORMATION
  Report Type: 
  Country: None (occurrence: None)
  Receive Date: 20100224
  Receipt Date: 20100224
  Transmission Date: 20100710
  Serious: No
  Sender: FDA-Public Use
  Company Number: None

PATIENT
  Age: 31 Year
  Sex: Male
  Weight: 122.0176 kg

DRUGS (7)
  1. QUETIAPINE [Suspect]
     Dosage: 1400 MG PO
     Route: 048
  2. QUETIAPINE [Concomitant]
  3. FLUOXETINE [Concomitant]
  4. RISPERIDONE [Concomitant]
  5. DEPAKOTE [Concomitant]
  6. OLANZAPINE [Concomitant]
  7. GEMFIBROZIL [Concomitant]

REACTIONS (1)
  - BLOOD TRIGLYCERIDES INCREASED [None]
